FAERS Safety Report 24711426 (Version 1)
Quarter: 2024Q4

REPORT INFORMATION
  Report Type: Spontaneous
  Country: DE (occurrence: DE)
  Receive Date: 20241209
  Receipt Date: 20241209
  Transmission Date: 20250115
  Serious: Yes (Other)
  Sender: ABBVIE
  Company Number: None

PATIENT
  Age: 72 Year
  Sex: Female

DRUGS (1)
  1. FOSCARBIDOPA\FOSLEVODOPA [Suspect]
     Active Substance: FOSCARBIDOPA\FOSLEVODOPA
     Indication: Product used for unknown indication
     Dosage: 240 MG/ML + 12 MG/ML INFUSIONS
     Route: 058

REACTIONS (6)
  - Infusion site abscess [Recovered/Resolved]
  - Injection site necrosis [Recovered/Resolved]
  - Infusion site inflammation [Recovered/Resolved]
  - Inflammation [Recovered/Resolved]
  - Erythema [Recovered/Resolved]
  - Skin induration [Recovered/Resolved]

NARRATIVE: CASE EVENT DATE: 20240101
